FAERS Safety Report 6294721-6 (Version None)
Quarter: 2009Q3

REPORT INFORMATION
  Report Type: 
  Country: None (occurrence: None)
  Receive Date: 20090803
  Receipt Date: 20090727
  Transmission Date: 20100115
  Serious: Yes (Other)
  Sender: FDA-Public Use
  Company Number: B0586599A

PATIENT
  Sex: Female

DRUGS (8)
  1. FLUTIDE [Suspect]
     Indication: DRUG USE FOR UNKNOWN INDICATION
     Route: 055
  2. BANAN [Suspect]
     Route: 065
  3. BIOFERMIN R [Concomitant]
     Route: 048
  4. TANNALBIN [Concomitant]
     Route: 048
  5. UNKNOWN DRUG [Concomitant]
     Route: 048
  6. UNKNOWN DRUG [Concomitant]
  7. PREDNISOLONE [Concomitant]
     Route: 042
  8. FLOMOX [Concomitant]

REACTIONS (8)
  - ADRENAL INSUFFICIENCY [None]
  - DIARRHOEA [None]
  - FINGER DEFORMITY [None]
  - GLOSSITIS [None]
  - OSTEOARTHRITIS [None]
  - OSTEOPOROSIS [None]
  - PRODUCTIVE COUGH [None]
  - STOMATITIS [None]
